FAERS Safety Report 9326768 (Version 2)
Quarter: 2013Q2

REPORT INFORMATION
  Report Type: Spontaneous
  Country: FR (occurrence: None)
  Receive Date: 20130522
  Receipt Date: 20130627
  Transmission Date: 20140414
  Serious: Yes (Other)
  Sender: FDA-Public Use
  Company Number: 2013MZ000083

PATIENT
  Age: 62 Year
  Sex: Female

DRUGS (3)
  1. XEOMIN [Suspect]
     Indication: PRODUCT USED FOR UNKNOWN INDICATION
     Route: 030
     Dates: start: 20130425, end: 20130425
  2. DUPHASTON [Concomitant]
  3. PARIET [Concomitant]

REACTIONS (2)
  - Retinal tear [None]
  - Vitreous haemorrhage [None]
